FAERS Safety Report 10420905 (Version 1)
Quarter: 2014Q3

REPORT INFORMATION
  Report Type: Spontaneous
  Country: US (occurrence: None)
  Receive Date: 20140714
  Receipt Date: 20140714
  Transmission Date: 20150326
  Serious: No
  Sender: FDA-Public Use
  Company Number: 2014US003260

PATIENT
  Age: 77 Year
  Sex: Female
  Weight: 77.02 kg

DRUGS (14)
  1. CALCIUM + VITAMIN D (CALCIUM, CALCIFEROL) [Concomitant]
  2. AMLODIPINE [Concomitant]
     Active Substance: AMLODIPINE BESYLATE
  3. PREMARIN [Concomitant]
     Active Substance: ESTROGENS, CONJUGATED
  4. SEROQUEL [Concomitant]
     Active Substance: QUETIAPINE FUMARATE
  5. METAMUCIL THERAPY FOR REGULARITY [Concomitant]
     Active Substance: PSYLLIUM HUSK
  6. ASPIRIN (ACETYLSALICYLIC ACID) [Concomitant]
     Active Substance: ASPIRIN
  7. PANTOPRAZOLE [Concomitant]
     Active Substance: PANTOPRAZOLE SODIUM
  8. CARVEDILOL. [Concomitant]
     Active Substance: CARVEDILOL
  9. HYDROCHLOROTHIAZIDE. [Concomitant]
     Active Substance: HYDROCHLOROTHIAZIDE
  10. AMBIEN [Concomitant]
     Active Substance: ZOLPIDEM TARTRATE
  11. ICLUSIG [Suspect]
     Active Substance: PONATINIB
     Indication: CHRONIC MYELOID LEUKAEMIA
     Route: 048
     Dates: start: 20130114
  12. VITAMIN B12 [Concomitant]
     Active Substance: CYANOCOBALAMIN
  13. LEVOTHYROXINE (LEVOTHYROXINE SODIUM) [Concomitant]
  14. LISINOPRIL (LISINOPRIL DIHYDRATE) [Concomitant]

REACTIONS (10)
  - Arthralgia [None]
  - Chest pain [None]
  - Eye pain [None]
  - Thrombocytopenia [None]
  - Weight increased [None]
  - Rash erythematous [None]
  - Headache [None]
  - Bone pain [None]
  - Hypertension [None]
  - Anaemia [None]

NARRATIVE: CASE EVENT DATE: 2014
